FAERS Safety Report 24228297 (Version 1)
Quarter: 2024Q3

REPORT INFORMATION
  Report Type: Spontaneous
  Country: CN (occurrence: CN)
  Receive Date: 20240820
  Receipt Date: 20240820
  Transmission Date: 20241016
  Serious: Yes (Other)
  Sender: ACCORD
  Company Number: CN-Accord-441392

PATIENT
  Age: 67 Year
  Sex: Male

DRUGS (9)
  1. OXALIPLATIN [Suspect]
     Active Substance: OXALIPLATIN
     Indication: Gastric cancer
     Dosage: ON DAY 1, FIRST, SECOND COURSE
     Dates: start: 202303, end: 2023
  2. CAPECITABINE [Concomitant]
     Active Substance: CAPECITABINE
     Indication: Adenocarcinoma gastric
     Dosage: ON DAYS 1-14, SECOND COURSE
     Dates: start: 202304, end: 2023
  3. TISLELIZUMAB [Concomitant]
     Active Substance: TISLELIZUMAB
     Indication: Tumour invasion
     Dosage: 200 MG ON DAY 1, SECOND COURSE
     Dates: start: 202304, end: 2023
  4. TISLELIZUMAB [Concomitant]
     Active Substance: TISLELIZUMAB
     Indication: Adenocarcinoma gastric
     Dosage: 200 MG ON DAY 1, SECOND COURSE
     Dates: start: 202304, end: 2023
  5. CAPECITABINE [Concomitant]
     Active Substance: CAPECITABINE
     Indication: Tumour invasion
     Dosage: ON DAYS 1-14, SECOND COURSE
     Dates: start: 202304, end: 2023
  6. CAPECITABINE [Concomitant]
     Active Substance: CAPECITABINE
     Indication: Gastric cancer
     Dosage: ON DAYS 1-14, SECOND COURSE
     Dates: start: 202304, end: 2023
  7. TISLELIZUMAB [Concomitant]
     Active Substance: TISLELIZUMAB
     Indication: Gastric cancer
     Dosage: 200 MG ON DAY 1, SECOND COURSE
     Dates: start: 202304, end: 2023
  8. OXALIPLATIN [Suspect]
     Active Substance: OXALIPLATIN
     Indication: Tumour invasion
     Dosage: ON DAY 1, FIRST, SECOND COURSE
     Dates: start: 202303, end: 2023
  9. OXALIPLATIN [Suspect]
     Active Substance: OXALIPLATIN
     Indication: Adenocarcinoma gastric
     Dosage: ON DAY 1, FIRST, SECOND COURSE
     Dates: start: 202303, end: 2023

REACTIONS (6)
  - Neutropenia [Recovered/Resolved]
  - Multiple organ dysfunction syndrome [Recovered/Resolved]
  - Renal impairment [Recovered/Resolved]
  - Cardiac dysfunction [Recovered/Resolved]
  - Drug hypersensitivity [Recovered/Resolved]
  - Thrombocytopenia [Recovered/Resolved]

NARRATIVE: CASE EVENT DATE: 20230401
